FAERS Safety Report 11197439 (Version 1)
Quarter: 2015Q2

REPORT INFORMATION
  Report Type: Spontaneous
  Country: IT (occurrence: IT)
  Receive Date: 20150617
  Receipt Date: 20150617
  Transmission Date: 20150821
  Serious: Yes (Hospitalization, Other)
  Sender: FDA-Public Use
  Company Number: IT-GLAXOSMITHKLINE INC.-IT2015GSK085071

PATIENT
  Age: 6 Year
  Sex: Male

DRUGS (7)
  1. ALBUTEROL. [Suspect]
     Active Substance: ALBUTEROL
     Indication: BRONCHOSPASM
     Dosage: 600 UG, UNK
  2. TOBRAMYCIN. [Concomitant]
     Active Substance: TOBRAMYCIN
  3. CEFTRIAXONE. [Concomitant]
     Active Substance: CEFTRIAXONE
  4. ALBUTEROL. [Suspect]
     Active Substance: ALBUTEROL
     Dosage: 1200 UG, UNK
  5. BETAMETHASONE [Concomitant]
     Active Substance: BETAMETHASONE
     Dosage: 0.5 MG, UNK
  6. FLUTICASONE [Concomitant]
     Active Substance: FLUTICASONE\FLUTICASONE PROPIONATE
     Indication: RESPIRATORY TRACT INFECTION
     Dosage: UNK
  7. AMOXICILLIN + CLAVULANIC ACID [Concomitant]
     Active Substance: AMOXICILLIN\CLAVULANIC ACID

REACTIONS (16)
  - Tachycardia [Recovered/Resolved]
  - Oxygen saturation [Recovered/Resolved]
  - Tachypnoea [Recovered/Resolved]
  - Skin lesion [Recovered/Resolved]
  - Lip swelling [Recovered/Resolved]
  - Bronchitis [Recovered/Resolved]
  - Cheilitis [Recovered/Resolved]
  - Stomatitis [Recovered/Resolved]
  - Stevens-Johnson syndrome [Recovered/Resolved]
  - Pyrexia [Recovered/Resolved]
  - Wheezing [Recovered/Resolved]
  - Conjunctivitis [Recovered/Resolved]
  - Bronchospasm [Recovered/Resolved]
  - Hyperaemia [Recovered/Resolved]
  - Pharyngeal erythema [Recovered/Resolved]
  - Dyspnoea [Recovered/Resolved]
